FAERS Safety Report 24642243 (Version 1)
Quarter: 2024Q4

REPORT INFORMATION
  Report Type: Spontaneous
  Country: CH (occurrence: CH)
  Receive Date: 20241120
  Receipt Date: 20241120
  Transmission Date: 20250115
  Serious: Yes (Life-Threatening, Hospitalization, Disabling, Other)
  Sender: GLAND PHARMA LTD
  Company Number: CH-GLANDPHARMA-CH-2024GLNLIT00978

PATIENT
  Age: 62 Year
  Sex: Female

DRUGS (2)
  1. PACLITAXEL [Suspect]
     Active Substance: PACLITAXEL
     Indication: Triple negative breast cancer
     Route: 065
  2. CARBOPLATIN [Suspect]
     Active Substance: CARBOPLATIN
     Indication: Triple negative breast cancer
     Route: 065

REACTIONS (4)
  - Gas gangrene [Recovered/Resolved]
  - Febrile neutropenia [Recovered/Resolved]
  - Clostridial sepsis [Recovered/Resolved]
  - Product use in unapproved indication [Unknown]
